FAERS Safety Report 15400914 (Version 1)
Quarter: 2018Q3

REPORT INFORMATION
  Report Type: Report from Study
  Country: US (occurrence: US)
  Receive Date: 20180919
  Receipt Date: 20180919
  Transmission Date: 20181010
  Serious: Yes (Other)
  Sender: FDA-Public Use
  Company Number: US-ROCHE-2174146

PATIENT
  Age: 48 Year
  Sex: Male

DRUGS (2)
  1. ATEZOLIZUMAB. [Suspect]
     Active Substance: ATEZOLIZUMAB
     Indication: THYROID CANCER
     Route: 042
     Dates: start: 20170926
  2. PACLITAXEL. [Suspect]
     Active Substance: PACLITAXEL
     Indication: THYROID CANCER
     Route: 042
     Dates: start: 20170926

REACTIONS (2)
  - Aspartate aminotransferase increased [Unknown]
  - Hepatobiliary cancer [Unknown]

NARRATIVE: CASE EVENT DATE: 20180806
